FAERS Safety Report 4994709-9 (Version None)
Quarter: 2006Q2

REPORT INFORMATION
  Report Type: 
  Country: None (occurrence: None)
  Receive Date: 20060505
  Receipt Date: 20060426
  Transmission Date: 20061013
  Serious: Yes (Hospitalization, Other)
  Sender: FDA-Public Use
  Company Number: US-ABBOTT-06P-163-0332079-00

PATIENT
  Sex: Female
  Weight: 75.818 kg

DRUGS (1)
  1. HUMIRA [Suspect]
     Indication: RHEUMATOID ARTHRITIS
     Route: 058
     Dates: start: 20060201, end: 20060401

REACTIONS (5)
  - BACK PAIN [None]
  - CHOLELITHIASIS [None]
  - CSF WHITE BLOOD CELL COUNT POSITIVE [None]
  - DIFFICULTY IN WALKING [None]
  - GUILLAIN-BARRE SYNDROME [None]
